FAERS Safety Report 16808308 (Version 1)
Quarter: 2019Q3

REPORT INFORMATION
  Report Type: Spontaneous
  Country: US (occurrence: US)
  Receive Date: 20190916
  Receipt Date: 20190916
  Transmission Date: 20191005
  Serious: No
  Sender: FDA-Public Use
  Company Number: US-BEH-2019106909

PATIENT

DRUGS (2)
  1. BERINERT [Suspect]
     Active Substance: HUMAN C1-ESTERASE INHIBITOR
     Route: 065
  2. ALCOHOL PAD [Suspect]
     Active Substance: ISOPROPYL ALCOHOL
     Route: 065

REACTIONS (3)
  - Device issue [Recovered/Resolved]
  - Product preparation issue [Recovered/Resolved]
  - No adverse event [Unknown]
